FAERS Safety Report 14329716 (Version 1)
Quarter: 2017Q4

REPORT INFORMATION
  Report Type: Report from Study
  Country: CA (occurrence: CA)
  Receive Date: 20171227
  Receipt Date: 20171227
  Transmission Date: 20180321
  Serious: Yes (Hospitalization)
  Sender: FDA-Public Use
  Company Number: PHHY2017CA106238

PATIENT
  Sex: Male

DRUGS (2)
  1. DESFERAL [Suspect]
     Active Substance: DEFEROXAMINE MESYLATE
     Indication: IRON OVERLOAD
     Route: 042
  2. EXJADE [Suspect]
     Active Substance: DEFERASIROX
     Indication: IRON OVERLOAD
     Dosage: 1750 MG, QD
     Route: 048
     Dates: start: 20170915, end: 20171027

REACTIONS (12)
  - Hypotension [Unknown]
  - Serum ferritin increased [Unknown]
  - Injection site reaction [Unknown]
  - Pulmonary embolism [Unknown]
  - Injection site abscess [Unknown]
  - Platelet count decreased [Unknown]
  - Chromaturia [Unknown]
  - Blood potassium decreased [Unknown]
  - Dysgeusia [Unknown]
  - Haemoglobin decreased [Unknown]
  - White blood cell count decreased [Unknown]
  - Red blood cell count increased [Unknown]
